FAERS Safety Report 11907839 (Version 3)
Quarter: 2016Q1

REPORT INFORMATION
  Report Type: Spontaneous
  Country: US (occurrence: US)
  Receive Date: 20160111
  Receipt Date: 20160325
  Transmission Date: 20160526
  Serious: Yes (Other)
  Sender: FDA-Public Use
  Company Number: US-ENDO PHARMACEUTICALS INC.-2016-000160

PATIENT
  Age: 38 Year
  Sex: Male
  Weight: 98.06 kg

DRUGS (2)
  1. SUMAVEL DOSEPRO [Suspect]
     Active Substance: SUMATRIPTAN SUCCINATE
     Indication: MIGRAINE
     Route: 058
     Dates: start: 20150609, end: 20151210
  2. THYROID THERAPY [Concomitant]
     Active Substance: UNSPECIFIED INGREDIENT
     Indication: THYROID DISORDER
     Route: 065

REACTIONS (5)
  - Accidental exposure to product [Recovered/Resolved]
  - Device malfunction [Recovered/Resolved]
  - Eye irritation [Recovered/Resolved]
  - Eye pain [Recovered/Resolved]
  - Eye contusion [Recovered/Resolved]

NARRATIVE: CASE EVENT DATE: 20151228
